FAERS Safety Report 12979509 (Version 2)
Quarter: 2016Q4

REPORT INFORMATION
  Report Type: Spontaneous
  Country: BR (occurrence: BR)
  Receive Date: 20161128
  Receipt Date: 20161206
  Transmission Date: 20170207
  Serious: Yes (Other)
  Sender: FDA-Public Use
  Company Number: PHHY2016BR159558

PATIENT
  Sex: Male
  Weight: 15 kg

DRUGS (2)
  1. AMOXICILLIN SODIUM+POTASSIUM CLAVULANATE SANDOZ [Suspect]
     Active Substance: AMOXICILLIN\CLAVULANATE POTASSIUM
     Indication: THROAT TIGHTNESS
  2. AMOXICILLIN SODIUM+POTASSIUM CLAVULANATE SANDOZ [Suspect]
     Active Substance: AMOXICILLIN\CLAVULANATE POTASSIUM
     Indication: NASAL CONGESTION
     Dosage: 2.5 ML, Q8H
     Route: 048
     Dates: start: 20161115, end: 20161122

REACTIONS (1)
  - Abdominal distension [Recovered/Resolved]
